FAERS Safety Report 8100371-9 (Version None)
Quarter: 2012Q1

REPORT INFORMATION
  Report Type: 
  Country: None (occurrence: None)
  Receive Date: 20120129
  Receipt Date: 20111122
  Transmission Date: 20120608
  Serious: No
  Sender: FDA-Public Use
  Company Number: US-ABBOTT-11P-163-0878022-00

PATIENT
  Age: 54 Year
  Sex: Female

DRUGS (11)
  1. BIOTIN [Concomitant]
     Indication: SUPPLEMENTATION THERAPY
  2. PRILOSEC [Concomitant]
     Indication: GASTROOESOPHAGEAL REFLUX DISEASE
  3. MAGNESIUM [Concomitant]
     Indication: MINERAL SUPPLEMENTATION
  4. REMIFEMIN [Concomitant]
     Indication: POSTMENOPAUSE
  5. CALCIUM [Concomitant]
     Indication: MINERAL SUPPLEMENTATION
  6. FISH OIL [Concomitant]
     Indication: SUPPLEMENTATION THERAPY
  7. HUMIRA [Suspect]
     Indication: CROHN'S DISEASE
     Dates: start: 20110719
  8. IMURAN [Concomitant]
     Indication: CROHN'S DISEASE
  9. POTASSIUM [Concomitant]
     Indication: MINERAL SUPPLEMENTATION
  10. PROBIOTICS [Concomitant]
     Indication: SUPPLEMENTATION THERAPY
  11. IRON [Concomitant]
     Indication: MINERAL SUPPLEMENTATION

REACTIONS (6)
  - INJECTION SITE SWELLING [None]
  - INJECTION SITE WARMTH [None]
  - INJECTION SITE PAIN [None]
  - INJECTION SITE ERYTHEMA [None]
  - OEDEMA PERIPHERAL [None]
  - INJECTION SITE PRURITUS [None]
